FAERS Safety Report 21773335 (Version 1)
Quarter: 2022Q4

REPORT INFORMATION
  Report Type: Spontaneous
  Country: KR (occurrence: KR)
  Receive Date: 20221223
  Receipt Date: 20221223
  Transmission Date: 20230113
  Serious: Yes (Other)
  Sender: FDA-Public Use
  Company Number: KR-ELI_LILLY_AND_COMPANY-KR202212011897

PATIENT
  Sex: Female

DRUGS (2)
  1. ZYPREXA [Suspect]
     Active Substance: OLANZAPINE
     Indication: Dementia
     Dosage: UNK, UNKNOWN
     Route: 065
  2. SILVERCEPT [Concomitant]
     Indication: Dementia

REACTIONS (2)
  - Dementia [Unknown]
  - Off label use [Unknown]
